FAERS Safety Report 6062739-4 (Version None)
Quarter: 2009Q1

REPORT INFORMATION
  Report Type: 
  Country: None (occurrence: None)
  Receive Date: 20090202
  Receipt Date: 20090202
  Transmission Date: 20090719
  Serious: No
  Sender: FDA-Public Use
  Company Number: None

PATIENT
  Age: 34 Year
  Sex: Female
  Weight: 56.6996 kg

DRUGS (1)
  1. ROPINIROLE [Suspect]
     Indication: PERIODIC LIMB MOVEMENT DISORDER
     Dosage: .5 MG 1 DOSE PO ONLY ONE DOSE
     Route: 048

REACTIONS (6)
  - EYE SWELLING [None]
  - HEADACHE [None]
  - LIP SWELLING [None]
  - NASAL DISORDER [None]
  - SOMNOLENCE [None]
  - SWOLLEN TONGUE [None]
